FAERS Safety Report 9406266 (Version 1)
Quarter: 2013Q3

REPORT INFORMATION
  Report Type: Spontaneous
  Country: US (occurrence: US)
  Receive Date: 20130717
  Receipt Date: 20130717
  Transmission Date: 20140515
  Serious: No
  Sender: FDA-Public Use
  Company Number: US-009507513-1307USA007833

PATIENT
  Sex: 0

DRUGS (1)
  1. JANUVIA [Suspect]
     Dosage: UNKNOWN
     Route: 048

REACTIONS (2)
  - Hypoglycaemia [Recovered/Resolved]
  - Dizziness [Recovered/Resolved]
